FAERS Safety Report 7430077-0 (Version None)
Quarter: 2011Q2

REPORT INFORMATION
  Report Type: 
  Country: None (occurrence: None)
  Receive Date: 20110421
  Receipt Date: 20110209
  Transmission Date: 20111010
  Serious: No
  Sender: FDA-Public Use
  Company Number: US-ASTRAZENECA-2011SE07545

PATIENT
  Age: 80 Year
  Sex: Female
  Weight: 52.6 kg

DRUGS (3)
  1. SYNTHROID [Concomitant]
     Indication: THYROID DISORDER
  2. TOPROL-XL [Suspect]
     Indication: HYPERTENSION
     Route: 048
  3. MYCARDIA [Concomitant]
     Indication: HYPERTENSION

REACTIONS (1)
  - ANORECTAL DISCOMFORT [None]
